FAERS Safety Report 9122482 (Version 2)
Quarter: 2013Q2

REPORT INFORMATION
  Report Type: Report from Study
  Country: CA (occurrence: CA)
  Receive Date: 20130227
  Receipt Date: 20130404
  Transmission Date: 20140414
  Serious: Yes (Death, Other)
  Sender: FDA-Public Use
  Company Number: PHHY2013CA018967

PATIENT
  Sex: Female

DRUGS (1)
  1. CLOZARIL [Suspect]
     Dosage: 100 MG, IN AM + AT HS
     Route: 048
     Dates: start: 19980506

REACTIONS (3)
  - Cardiac arrest [Fatal]
  - Aspiration [Fatal]
  - Choking [Unknown]
